FAERS Safety Report 5972656-3 (Version None)
Quarter: 2008Q4

REPORT INFORMATION
  Report Type: 
  Country: None (occurrence: None)
  Receive Date: 20081201
  Receipt Date: 20081119
  Transmission Date: 20090506
  Serious: Yes (Other)
  Sender: FDA-Public Use
  Company Number: IT-NOVOPROD-281381

PATIENT
  Sex: Female
  Weight: 58 kg

DRUGS (2)
  1. NOVORAPID [Suspect]
     Indication: TYPE 2 DIABETES MELLITUS
     Dates: start: 20080915, end: 20080916
  2. NOVOMIX 50 FLEXPEN [Concomitant]
     Dosage: 20 IU, QD

REACTIONS (1)
  - HYPERSENSITIVITY [None]
